FAERS Safety Report 6382556-5 (Version None)
Quarter: 2009Q3

REPORT INFORMATION
  Report Type: 
  Country: None (occurrence: None)
  Receive Date: 20090930
  Receipt Date: 20090923
  Transmission Date: 20100115
  Serious: Yes (Hospitalization)
  Sender: FDA-Public Use
  Company Number: A0809371A

PATIENT
  Sex: Male
  Weight: 11.3 kg

DRUGS (2)
  1. FLIXOTIDE [Suspect]
     Indication: ASTHMA
     Dosage: 1PUFF TWICE PER DAY
     Dates: start: 20080901, end: 20090401
  2. PREDSIM [Concomitant]
     Dosage: 4ML PER DAY
     Dates: start: 20090919

REACTIONS (1)
  - ASTHMATIC CRISIS [None]
